FAERS Safety Report 11988659 (Version 2)
Quarter: 2016Q1

REPORT INFORMATION
  Report Type: Spontaneous
  Country: US (occurrence: US)
  Receive Date: 20160202
  Receipt Date: 20160203
  Transmission Date: 20160526
  Serious: Yes (Death, Other)
  Sender: FDA-Public Use
  Company Number: US-AMGEN-USASP2016010745

PATIENT
  Age: 62 Year
  Sex: Male

DRUGS (1)
  1. PROCRIT [Suspect]
     Active Substance: ERYTHROPOIETIN
     Indication: PRODUCT USED FOR UNKNOWN INDICATION
     Dosage: 1.5 ML, EVERY 3 DAYS
     Route: 065
     Dates: start: 2012

REACTIONS (2)
  - Death [Fatal]
  - Unevaluable event [Unknown]

NARRATIVE: CASE EVENT DATE: 20160104
